FAERS Safety Report 22356396 (Version 1)
Quarter: 2023Q2

REPORT INFORMATION
  Report Type: Spontaneous
  Country: CA (occurrence: CA)
  Receive Date: 20230523
  Receipt Date: 20230523
  Transmission Date: 20230721
  Serious: Yes (Other)
  Sender: FDA-Public Use
  Company Number: CA-FreseniusKabi-FK202306810

PATIENT
  Age: 77 Year
  Sex: Female

DRUGS (2)
  1. ZOLEDRONIC ACID [Suspect]
     Active Substance: ZOLEDRONIC ACID
     Indication: Osteoporosis
  2. STELARA [Concomitant]
     Active Substance: USTEKINUMAB
     Indication: Chronic disease

REACTIONS (1)
  - Knee arthroplasty [Unknown]
